FAERS Safety Report 16981084 (Version 3)
Quarter: 2021Q2

REPORT INFORMATION
  Report Type: Report from Study
  Country: CN (occurrence: CN)
  Receive Date: 20191031
  Receipt Date: 20210504
  Transmission Date: 20210716
  Serious: Yes (Hospitalization)
  Sender: FDA-Public Use
  Company Number: PHHO2019CN008265

PATIENT
  Age: 83 Year
  Sex: Female
  Weight: 49 kg

DRUGS (16)
  1. SPIROLACTON [Concomitant]
     Active Substance: SPIRONOLACTONE
     Indication: VENTRICULAR REMODELLING
     Dosage: 20 MG, QD
     Route: 048
     Dates: start: 20190810
  2. PANTOPRAZOLE SODIUM. [Concomitant]
     Active Substance: PANTOPRAZOLE SODIUM
     Indication: GASTROINTESTINAL DISORDER PROPHYLAXIS
     Dosage: 40 MG, QD
     Route: 048
     Dates: start: 20190810
  3. ISOSORBIDE MONONITRATE. [Concomitant]
     Active Substance: ISOSORBIDE MONONITRATE
     Indication: MYOCARDIAL ISCHAEMIA
     Dosage: 20 MG, QD
     Route: 048
     Dates: start: 20190810
  4. HYDROTALCITE [Concomitant]
     Active Substance: HYDROTALCITE
     Indication: GASTROINTESTINAL DISORDER PROPHYLAXIS
     Dosage: 1000 MG, TID
     Route: 048
     Dates: start: 20190810
  5. ACERTIL [Suspect]
     Active Substance: PERINDOPRIL
     Indication: PRODUCT USED FOR UNKNOWN INDICATION
     Dosage: UNK
     Route: 065
  6. ATORVASTATIN CALCIUM. [Concomitant]
     Active Substance: ATORVASTATIN CALCIUM
     Indication: ARTERIOSCLEROSIS
     Dosage: 20 MG, QD
     Route: 048
     Dates: start: 20190810
  7. LEUCOGEN [Concomitant]
     Active Substance: LEUCOGEN
     Indication: WHITE BLOOD CELL COUNT INCREASED
     Dosage: 1 IU, BID
     Route: 048
     Dates: start: 20190810
  8. METOPROLOL SUCCINATE. [Concomitant]
     Active Substance: METOPROLOL SUCCINATE
     Indication: HEART RATE
     Dosage: 48 MG, QD
     Route: 048
     Dates: start: 20190810
  9. FURUSEMIDE [Concomitant]
     Active Substance: FUROSEMIDE
     Indication: POLYURIA
  10. AMCAL ASPIRIN [Concomitant]
     Indication: ANTIPLATELET THERAPY
     Dosage: UNK
     Route: 048
     Dates: start: 20190810
  11. RAMIPRIL. [Suspect]
     Active Substance: RAMIPRIL
     Indication: ACUTE MYOCARDIAL INFARCTION
     Dosage: UNK
     Route: 048
     Dates: start: 20190802
  12. CLOPIDOGREL BESILATE [Concomitant]
     Active Substance: CLOPIDOGREL BESILATE
     Indication: ANTIPLATELET THERAPY
     Dosage: 150 MG, QD
     Route: 048
     Dates: start: 20190810, end: 20190811
  13. CLOPIDOGREL BESILATE [Concomitant]
     Active Substance: CLOPIDOGREL BESILATE
     Dosage: UNK
     Route: 048
  14. AMIODARONE HYDROCHLORIDE. [Concomitant]
     Active Substance: AMIODARONE HYDROCHLORIDE
     Indication: ATRIAL FIBRILLATION
     Dosage: UNK
     Route: 048
     Dates: start: 20190810, end: 20190811
  15. AMIODARONE HYDROCHLORIDE. [Concomitant]
     Active Substance: AMIODARONE HYDROCHLORIDE
     Dosage: UNK
     Route: 048
  16. FURUSEMIDE [Concomitant]
     Active Substance: FUROSEMIDE
     Indication: POLYURIA
     Dosage: 20 MG, QD
     Route: 048
     Dates: start: 20190810, end: 20190811

REACTIONS (1)
  - Cough [Recovered/Resolved]

NARRATIVE: CASE EVENT DATE: 20190812
